FAERS Safety Report 5773178-5 (Version None)
Quarter: 2008Q2

REPORT INFORMATION
  Report Type: 
  Country: None (occurrence: None)
  Receive Date: 20080613
  Receipt Date: 20080613
  Transmission Date: 20081010
  Serious: Yes (Hospitalization)
  Sender: FDA-Public Use
  Company Number: None

PATIENT
  Sex: Female
  Weight: 90.7194 kg

DRUGS (1)
  1. PHENYTOIN ER 100 MG - TARO [Suspect]
     Indication: CONVULSION
     Dosage: 500 MG DAILY ORAL
     Route: 048
     Dates: start: 20080408, end: 20080508

REACTIONS (6)
  - ANTICONVULSANT DRUG LEVEL ABOVE THERAPEUTIC [None]
  - BALANCE DISORDER [None]
  - CONVULSION [None]
  - FALL [None]
  - INCOHERENT [None]
  - NYSTAGMUS [None]
